FAERS Safety Report 13493692 (Version 2)
Quarter: 2017Q2

REPORT INFORMATION
  Report Type: Spontaneous
  Country: US (occurrence: US)
  Receive Date: 20170427
  Receipt Date: 20170609
  Transmission Date: 20170830
  Serious: No
  Sender: FDA-Public Use
  Company Number: US-ACTELION-A-NJ2017-153073

PATIENT
  Age: 33 Year
  Sex: Female

DRUGS (7)
  1. FLUOXETINE [Concomitant]
     Active Substance: FLUOXETINE HYDROCHLORIDE
  2. CARAFATE [Concomitant]
     Active Substance: SUCRALFATE
  3. OPSUMIT [Suspect]
     Active Substance: MACITENTAN
     Indication: PULMONARY ARTERIAL HYPERTENSION
     Dosage: 10 MG, QD
     Route: 048
     Dates: start: 20170201
  4. REMODULIN [Concomitant]
     Active Substance: TREPROSTINIL
  5. ALPRAZOLAM. [Concomitant]
     Active Substance: ALPRAZOLAM
  6. PROTONIX [Concomitant]
     Active Substance: PANTOPRAZOLE SODIUM
  7. LORATADINE. [Concomitant]
     Active Substance: LORATADINE

REACTIONS (5)
  - Tunnel vision [Not Recovered/Not Resolved]
  - Diarrhoea [Unknown]
  - Syncope [Not Recovered/Not Resolved]
  - Flushing [Unknown]
  - Dizziness [Not Recovered/Not Resolved]

NARRATIVE: CASE EVENT DATE: 20170421
